FAERS Safety Report 19295238 (Version 1)
Quarter: 2021Q2

REPORT INFORMATION
  Report Type: Spontaneous
  Country: FR (occurrence: FR)
  Receive Date: 20210524
  Receipt Date: 20210524
  Transmission Date: 20210717
  Serious: Yes (Hospitalization)
  Sender: FDA-Public Use
  Company Number: FR-ROCHE-2834799

PATIENT
  Age: 53 Year
  Sex: Male

DRUGS (9)
  1. ALCOOL [Suspect]
     Active Substance: ALCOHOL
     Indication: PRODUCT USED FOR UNKNOWN INDICATION
     Route: 048
  2. BUPRENORPHINE. [Suspect]
     Active Substance: BUPRENORPHINE
     Indication: PRODUCT USED FOR UNKNOWN INDICATION
     Dosage: ON 09/JAN/2020, MOST RECENT DOSE
     Route: 048
     Dates: start: 20200109
  3. SERESTA [Suspect]
     Active Substance: OXAZEPAM
     Indication: PRODUCT USED FOR UNKNOWN INDICATION
     Dosage: ON 09/JAN/2020, MOST RECENT DOSE
     Route: 048
     Dates: start: 20200109
  4. TABACUM [Suspect]
     Active Substance: TOBACCO LEAF
     Indication: PRODUCT USED FOR UNKNOWN INDICATION
     Route: 055
  5. SUBUTEX [Suspect]
     Active Substance: BUPRENORPHINE HYDROCHLORIDE
     Indication: PRODUCT USED FOR UNKNOWN INDICATION
     Dosage: ON 09/JAN/2020, MOST RECENT DOSE
     Route: 048
     Dates: start: 20200109
  6. COCAINE [Suspect]
     Active Substance: COCAINE
     Indication: PRODUCT USED FOR UNKNOWN INDICATION
     Dosage: ON 09/JAN/2020, MOST RECENT DOSE
     Route: 065
     Dates: start: 20200109
  7. HEROIN [Suspect]
     Active Substance: DIAMORPHINE
     Indication: PRODUCT USED FOR UNKNOWN INDICATION
     Route: 042
  8. DIAZEPAM. [Suspect]
     Active Substance: DIAZEPAM
     Indication: PRODUCT USED FOR UNKNOWN INDICATION
     Dosage: ON 09/JAN/2020, MOST RECENT DOSE
     Route: 048
     Dates: start: 20200109
  9. TERCIAN [Suspect]
     Active Substance: CYAMEMAZINE
     Indication: PRODUCT USED FOR UNKNOWN INDICATION
     Dosage: ON 09/JAN/2020, MOST RECENT DOSE
     Route: 048
     Dates: start: 20200109

REACTIONS (6)
  - Drug abuse [Unknown]
  - Hypersensitivity pneumonitis [Recovering/Resolving]
  - Miosis [Recovering/Resolving]
  - Rhabdomyolysis [Recovered/Resolved]
  - Hypoxia [Recovered/Resolved]
  - Coma [Recovered/Resolved]

NARRATIVE: CASE EVENT DATE: 20200109
